FAERS Safety Report 16828703 (Version 3)
Quarter: 2019Q4

REPORT INFORMATION
  Report Type: Spontaneous
  Country: JP (occurrence: JP)
  Receive Date: 20190919
  Receipt Date: 20191030
  Transmission Date: 20200122
  Serious: Yes (Death, Other)
  Sender: FDA-Public Use
  Company Number: JP-EISAI MEDICAL RESEARCH-EC-2019-062229

PATIENT
  Sex: Male

DRUGS (4)
  1. CLOPIDOGREL SULFATE [Suspect]
     Active Substance: CLOPIDOGREL BISULFATE
     Indication: CEREBRAL INFARCTION
     Dosage: DOSAGE AND FREQUENCY UNKNOWN
  2. LENVIMA [Suspect]
     Active Substance: LENVATINIB
     Indication: THYROID CANCER
     Route: 048
  3. LENVIMA [Suspect]
     Active Substance: LENVATINIB
     Route: 048
  4. BAYASPIRIN [Suspect]
     Active Substance: ASPIRIN
     Indication: CEREBRAL INFARCTION
     Dosage: DOSAGE AND FREQUENCY UNKNOWN

REACTIONS (2)
  - Cerebral infarction [Recovered/Resolved]
  - Cerebellar haemorrhage [Fatal]
